FAERS Safety Report 23865276 (Version 2)
Quarter: 2024Q2

REPORT INFORMATION
  Report Type: Spontaneous
  Country: CA (occurrence: CA)
  Receive Date: 20240517
  Receipt Date: 20240617
  Transmission Date: 20240716
  Serious: No
  Sender: FDA-Public Use
  Company Number: CA-TOLMAR, INC.-24CA048655

PATIENT
  Age: 63 Year
  Sex: Male

DRUGS (4)
  1. ELIGARD [Suspect]
     Active Substance: LEUPROLIDE ACETATE
     Indication: Prostate cancer
     Dosage: 45 MILLIGRAM, Q 6 MONTH
     Route: 058
     Dates: start: 202404
  2. ELIGARD [Suspect]
     Active Substance: LEUPROLIDE ACETATE
     Dosage: 45 MILLIGRAM, Q 6 MONTH
     Route: 058
     Dates: start: 20230905
  3. DEVICE [Suspect]
     Active Substance: DEVICE
     Indication: Prostate cancer
     Dosage: UNK
  4. CASODEX [Concomitant]
     Active Substance: BICALUTAMIDE
     Indication: Product used for unknown indication
     Dosage: UNK, SINGLE
     Dates: start: 202308

REACTIONS (4)
  - Wrong technique in product usage process [Unknown]
  - Intercepted product preparation error [Unknown]
  - Device leakage [Unknown]
  - Syringe issue [Unknown]

NARRATIVE: CASE EVENT DATE: 20240401
